FAERS Safety Report 21526545 (Version 2)
Quarter: 2022Q4

REPORT INFORMATION
  Report Type: Spontaneous
  Country: AT (occurrence: AT)
  Receive Date: 20221031
  Receipt Date: 20221111
  Transmission Date: 20230113
  Serious: Yes (Life-Threatening, Hospitalization, Disabling)
  Sender: FDA-Public Use
  Company Number: None

PATIENT
  Age: 74 Year
  Sex: Male

DRUGS (2)
  1. TECENTRIQ [Suspect]
     Active Substance: ATEZOLIZUMAB
     Indication: Large cell lung cancer
     Route: 065
     Dates: start: 20220112, end: 20220830
  2. CARBOPLATIN [Concomitant]
     Active Substance: CARBOPLATIN

REACTIONS (4)
  - Chronic inflammatory demyelinating polyradiculoneuropathy [Unknown]
  - Guillain-Barre syndrome [Unknown]
  - Disease progression [Not Recovered/Not Resolved]
  - Interstitial lung disease [Not Recovered/Not Resolved]
